FAERS Safety Report 7089032-5 (Version None)
Quarter: 2010Q4

REPORT INFORMATION
  Report Type: 
  Country: None (occurrence: None)
  Receive Date: 20101108
  Receipt Date: 20101102
  Transmission Date: 20110411
  Serious: Yes (Other)
  Sender: FDA-Public Use
  Company Number: A0890951A

PATIENT
  Sex: Female

DRUGS (1)
  1. AVANDIA [Suspect]
     Dates: start: 20040401

REACTIONS (4)
  - AORTIC VALVE STENOSIS [None]
  - CARDIAC FAILURE CONGESTIVE [None]
  - LEFT VENTRICULAR HYPERTROPHY [None]
  - MITRAL VALVE INCOMPETENCE [None]
